FAERS Safety Report 13946417 (Version 14)
Quarter: 2019Q2

REPORT INFORMATION
  Report Type: Report from Study
  Country: DE (occurrence: DE)
  Receive Date: 20170907
  Receipt Date: 20190524
  Transmission Date: 20190711
  Serious: Yes (Life-Threatening, Hospitalization, Other)
  Sender: FDA-Public Use
  Company Number: DE-JNJFOC-20170904441

PATIENT
  Age: 53 Year
  Sex: Male
  Weight: 87 kg

DRUGS (16)
  1. ADRIAMYCIN [Suspect]
     Active Substance: DOXORUBICIN HYDROCHLORIDE
     Indication: PLASMA CELL MYELOMA
     Dosage: ON DAYS 1-4
     Route: 042
     Dates: start: 20170627, end: 20170630
  2. DECADRON [Suspect]
     Active Substance: DEXAMETHASONE
     Indication: PLASMA CELL MYELOMA
     Dosage: C 1 PLUS 2, DAY 1,8, 15, C3 PLUS 4 DAY 1, 11
     Route: 048
     Dates: start: 20170307, end: 20170619
  3. EMPLICITI [Suspect]
     Active Substance: ELOTUZUMAB
     Indication: PLASMA CELL MYELOMA
     Dosage: C1 PLUS 2, DAY1, 8, 15, C3 PLUS 4 DAY 1, 11
     Route: 042
     Dates: start: 20170307, end: 20170619
  4. VELCADE [Suspect]
     Active Substance: BORTEZOMIB
     Indication: PLASMA CELL MYELOMA
     Dosage: ON DAYS 1, 4, 8,  11 AND ONE WEEK OFF OF 21 DAY CYCLE; 2.6 MG TWICE A WEEK
     Route: 058
     Dates: start: 20170307, end: 20170619
  5. REVLIMID [Suspect]
     Active Substance: LENALIDOMIDE
     Indication: PLASMA CELL MYELOMA
     Route: 048
     Dates: start: 20171113, end: 20171224
  6. DECADRON [Suspect]
     Active Substance: DEXAMETHASONE
     Indication: PLASMA CELL MYELOMA
     Dosage: ON DAYS 1,8, 15 OF CYCLE 1 AND 2; DAY 1 AND 11 OF CYCLE 3 AND 4
     Route: 048
     Dates: start: 20171113, end: 20171224
  7. DECADRON [Suspect]
     Active Substance: DEXAMETHASONE
     Indication: PLASMA CELL MYELOMA
     Dosage: ON DAYS 2, 4-5, 9, 11-12
     Route: 048
     Dates: start: 20170307, end: 20170619
  8. DECADRON [Suspect]
     Active Substance: DEXAMETHASONE
     Indication: PLASMA CELL MYELOMA
     Dosage: ON DAY 1 AND DAY 15
     Route: 048
     Dates: start: 20180206, end: 20180725
  9. REVLIMID [Suspect]
     Active Substance: LENALIDOMIDE
     Indication: PLASMA CELL MYELOMA
     Route: 048
     Dates: start: 20180206, end: 20180327
  10. MELPHALAN. [Concomitant]
     Active Substance: MELPHALAN
     Route: 042
     Dates: start: 20170815, end: 20170816
  11. VELCADE [Suspect]
     Active Substance: BORTEZOMIB
     Indication: PLASMA CELL MYELOMA
     Route: 058
     Dates: start: 20171113, end: 20171224
  12. CYTOXAN [Suspect]
     Active Substance: CYCLOPHOSPHAMIDE
     Indication: PLASMA CELL MYELOMA
     Route: 042
     Dates: start: 20170627, end: 20170630
  13. REVLIMID [Suspect]
     Active Substance: LENALIDOMIDE
     Indication: PLASMA CELL MYELOMA
     Dosage: FOR 2 WEEKS AND 1 WEEK OFF
     Route: 048
     Dates: start: 20170307, end: 20170619
  14. DECADRON [Suspect]
     Active Substance: DEXAMETHASONE
     Indication: PLASMA CELL MYELOMA
     Route: 042
     Dates: start: 20170307, end: 20170619
  15. DECADRON [Suspect]
     Active Substance: DEXAMETHASONE
     Indication: PLASMA CELL MYELOMA
     Dosage: ON DAY 1-4; ON DAYS 1,8, 15 OF CYCLE 1 AND 2; DAY 1 AND 11 OF CYCLE 3 AND 4
     Route: 048
     Dates: start: 20170627, end: 20170630
  16. HEPARIN [Concomitant]
     Active Substance: HEPARIN SODIUM
     Route: 065

REACTIONS (7)
  - Ileostomy [Recovered/Resolved]
  - Peritonitis [Recovered/Resolved with Sequelae]
  - Rectal perforation [Recovered/Resolved with Sequelae]
  - Vomiting [Recovered/Resolved with Sequelae]
  - Nausea [Recovered/Resolved with Sequelae]
  - Septic shock [Recovered/Resolved with Sequelae]
  - Abdominal wall abscess [Recovered/Resolved]

NARRATIVE: CASE EVENT DATE: 20170405
